FAERS Safety Report 25183752 (Version 2)
Quarter: 2025Q2

REPORT INFORMATION
  Report Type: Spontaneous
  Country: US (occurrence: US)
  Receive Date: 20250410
  Receipt Date: 20250423
  Transmission Date: 20250716
  Serious: Yes (Other)
  Sender: TEVA
  Company Number: US-TEVA-VS-3317466

PATIENT
  Age: 70 Year
  Sex: Female

DRUGS (1)
  1. PREDNISONE [Suspect]
     Active Substance: PREDNISONE
     Indication: Giant cell arteritis
     Route: 048

REACTIONS (4)
  - Eye infection toxoplasmal [Recovered/Resolved]
  - Visual impairment [Recovered/Resolved]
  - Toxoplasmosis [Recovered/Resolved]
  - Macular oedema [Recovered/Resolved]
